FAERS Safety Report 8841326 (Version 1)
Quarter: 2012Q4

REPORT INFORMATION
  Report Type: 
  Country: BE (occurrence: BE)
  Receive Date: 20121015
  Receipt Date: 20121015
  Transmission Date: 20130627
  Serious: Yes (Hospitalization, Other)
  Sender: FDA-Public Use
  Company Number: BE-PFIZER INC-2012250237

PATIENT
  Sex: Female

DRUGS (1)
  1. TORISEL [Suspect]
     Indication: MANTLE CELL LYMPHOMA RECURRENT
     Dosage: UNK
     Dates: start: 201209

REACTIONS (7)
  - Intestinal haemorrhage [Recovered/Resolved]
  - Delirium [Unknown]
  - Pharyngeal disorder [Not Recovered/Not Resolved]
  - Oral disorder [Not Recovered/Not Resolved]
  - Abnormal behaviour [Unknown]
  - Confusional state [Unknown]
  - Memory impairment [Unknown]
